FAERS Safety Report 16133675 (Version 1)
Quarter: 2019Q1

REPORT INFORMATION
  Report Type: Spontaneous
  Country: SE (occurrence: SE)
  Receive Date: 20190329
  Receipt Date: 20190329
  Transmission Date: 20190418
  Serious: Yes (Other)
  Sender: FDA-Public Use
  Company Number: SE-ACCORD-116729

PATIENT
  Age: 74 Year
  Sex: Female

DRUGS (8)
  1. ANASTROZOL SANDOZ [Concomitant]
  2. BISOPROLOL KRKA [Concomitant]
     Active Substance: BISOPROLOL FUMARATE
  3. BETAPRED [Concomitant]
     Active Substance: BETAMETHASONE SODIUM PHOSPHATE
  4. LEVAXIN [Concomitant]
     Active Substance: LEVOTHYROXINE SODIUM
  5. ENALAPRIL [Concomitant]
     Active Substance: ENALAPRIL
  6. AMLODIPINE [Suspect]
     Active Substance: AMLODIPINE BESYLATE
     Indication: PRODUCT USED FOR UNKNOWN INDICATION
     Dosage: TAKEN 1 DOSE,STRENGTH:10/5 MG
     Route: 048
     Dates: start: 20171127, end: 20180307
  7. WARAN [Concomitant]
     Active Substance: WARFARIN SODIUM
  8. ISCADOR [Concomitant]
     Active Substance: VISCUM ALBUM FRUITING TOP

REACTIONS (4)
  - Vasculitis [Recovered/Resolved]
  - Nocturia [Recovered/Resolved]
  - Constipation [Recovered/Resolved]
  - Ageusia [Not Recovered/Not Resolved]

NARRATIVE: CASE EVENT DATE: 20171127
